FAERS Safety Report 5736333-6 (Version None)
Quarter: 2008Q2

REPORT INFORMATION
  Report Type: 
  Country: None (occurrence: None)
  Receive Date: 20080513
  Receipt Date: 20080505
  Transmission Date: 20081010
  Serious: Yes (Other)
  Sender: FDA-Public Use
  Company Number: US-ELI_LILLY_AND_COMPANY-US200805000956

PATIENT
  Age: 75 Year
  Sex: Female

DRUGS (6)
  1. HUMALOG [Suspect]
     Dosage: 20 U, BEFORE MEALS
  2. HUMALOG [Suspect]
     Dosage: UNK, AS NEEDED
  3. LOPRESSOR [Concomitant]
     Indication: HEART RATE INCREASED
  4. WARFARIN SODIUM [Concomitant]
  5. SIMVASTATIN [Concomitant]
  6. OXYGEN [Concomitant]
     Dosage: 24 HOURS

REACTIONS (5)
  - CARDIAC FAILURE CONGESTIVE [None]
  - CARDIAC PACEMAKER INSERTION [None]
  - GLAUCOMA [None]
  - HYPERTENSION [None]
  - RENAL FAILURE [None]
